FAERS Safety Report 5874902-3 (Version None)
Quarter: 2008Q3

REPORT INFORMATION
  Report Type: 
  Country: None (occurrence: None)
  Receive Date: 20080904
  Receipt Date: 20080826
  Transmission Date: 20090109
  Serious: Yes (Hospitalization)
  Sender: FDA-Public Use
  Company Number: 2008JP003893

PATIENT
  Age: 13 Year
  Sex: Female
  Weight: 34.7 kg

DRUGS (4)
  1. PROGRAF [Suspect]
     Indication: RENAL TRANSPLANT
     Dosage: 4 MG,
  2. MIZORIBINE (MIZORIBINE) FORMULATION UNKNOWN [Concomitant]
  3. BASILIXIMAB (BASILIXIMAB) FORMULATION UNKNOWN [Concomitant]
  4. METHYLPREDNISOLONE [Concomitant]

REACTIONS (2)
  - MESANGIOPROLIFERATIVE GLOMERULONEPHRITIS [None]
  - TRANSPLANT REJECTION [None]
